FAERS Safety Report 7666752-2 (Version None)
Quarter: 2011Q3

REPORT INFORMATION
  Report Type: 
  Country: None (occurrence: None)
  Receive Date: 20110806
  Receipt Date: 20110510
  Transmission Date: 20111222
  Serious: No
  Sender: FDA-Public Use
  Company Number: US-ABBOTT-11P-163-0725109-00

PATIENT
  Sex: Male
  Weight: 88.53 kg

DRUGS (8)
  1. NIASPAN [Suspect]
     Indication: ARTERIOSCLEROSIS
     Dates: start: 20110101
  2. BYSTOLIC [Concomitant]
     Indication: HYPERTENSION
  3. ASPIRIN [Concomitant]
     Indication: ADVERSE EVENT
  4. EFFIENT [Concomitant]
     Indication: THROMBOSIS
  5. OXYCODONE HCL [Concomitant]
     Indication: PAIN
  6. EFFIENT [Concomitant]
     Indication: PROPHYLAXIS
  7. ASPIRIN [Concomitant]
     Indication: PROPHYLAXIS
  8. CRESTOR [Concomitant]
     Indication: BLOOD CHOLESTEROL INCREASED

REACTIONS (1)
  - FLUSHING [None]
